FAERS Safety Report 14868201 (Version 5)
Quarter: 2019Q3

REPORT INFORMATION
  Report Type: Spontaneous
  Country: BR (occurrence: BR)
  Receive Date: 20180509
  Receipt Date: 20190731
  Transmission Date: 20191004
  Serious: Yes (Hospitalization, Other)
  Sender: FDA-Public Use
  Company Number: BR-AMGEN-BRASP2018061711

PATIENT
  Age: 79 Year
  Sex: Male
  Weight: 70 kg

DRUGS (3)
  1. ENBREL [Suspect]
     Active Substance: ETANERCEPT
     Dosage: 50 MG, ONCE PER WEEK
     Route: 065
     Dates: start: 2018, end: 201905
  2. ENBREL [Suspect]
     Active Substance: ETANERCEPT
     Dosage: 25 MG ONCE PER WEEK
     Route: 065
     Dates: start: 2018, end: 2018
  3. ENBREL [Suspect]
     Active Substance: ETANERCEPT
     Indication: PSORIASIS
     Dosage: 50 MG, ONCE PER WEEK
     Route: 065
     Dates: start: 20160101, end: 2018

REACTIONS (4)
  - Tinea pedis [Recovering/Resolving]
  - Fungating wound [Recovering/Resolving]
  - Inflammation [Recovering/Resolving]
  - Cataract [Unknown]

NARRATIVE: CASE EVENT DATE: 201801
